FAERS Safety Report 25117960 (Version 11)
Quarter: 2025Q4

REPORT INFORMATION
  Report Type: Report from Study
  Country: EU (occurrence: None)
  Receive Date: 20250325
  Receipt Date: 20251229
  Transmission Date: 20260117
  Serious: Yes (Hospitalization)
  Sender: UCB
  Company Number: EU-UCBSA-2025016215

PATIENT
  Age: 44 Year
  Weight: 88 kg

DRUGS (11)
  1. BIMEKIZUMAB [Suspect]
     Active Substance: BIMEKIZUMAB
     Indication: Hidradenitis
     Dosage: 320 MILLIGRAM, EV 2 WEEKS(QOW)
  2. BIMEKIZUMAB [Suspect]
     Active Substance: BIMEKIZUMAB
     Dosage: 320 MILLIGRAM, EV 2 WEEKS(QOW)
  3. BIMEKIZUMAB [Suspect]
     Active Substance: BIMEKIZUMAB
     Dosage: 320 MILLIGRAM, EV 4 WEEKS
  4. RENNI [Concomitant]
     Indication: Gastrooesophageal reflux disease
     Dosage: 8 GRAM, AS NEEDED
  5. CETIRIZINE HYDROCHLORIDE [Concomitant]
     Active Substance: CETIRIZINE HYDROCHLORIDE
     Indication: Conjunctivitis allergic
     Dosage: 10 MILLIGRAM, AS NEEDED (PRN)
  6. NASIC NASENSPRAY [Concomitant]
     Indication: Conjunctivitis allergic
     Dosage: 15 MILLILITER, AS NEEDED (PRN)
  7. NOVALGIN [Concomitant]
     Indication: Hidradenitis
     Dosage: 1 GRAM, 3 TIMES (DISCONTINUED DUE TO INTOLERANCE)
  8. CLOTRIMAZOLE [Concomitant]
     Active Substance: CLOTRIMAZOLE
     Indication: Hidradenitis
     Dosage: 10 MILLIGRAM, AS NEEDED (PRN)
  9. ENOXAPARIN SODIUM [Concomitant]
     Active Substance: ENOXAPARIN SODIUM
     Indication: Thrombosis prophylaxis
     Dosage: 4000 INTERNATIONAL UNIT, ONCE
  10. ACETAMINOPHEN [Concomitant]
     Active Substance: ACETAMINOPHEN
     Indication: Hidradenitis
     Dosage: 500 MILLIGRAM, AS NEEDED (PRN)
  11. CALCIUM CARBONATE, MAGNESIUM CARBONATE [Concomitant]
     Indication: Gastrooesophageal reflux disease
     Dosage: 8 GRAM, AS NEEDED (PRN)

REACTIONS (6)
  - Laryngitis [Recovered/Resolved]
  - Hidradenitis [Recovered/Resolved]
  - Surgery [Recovered/Resolved]
  - Intertrigo [Not Recovered/Not Resolved]
  - Respiratory tract infection viral [Recovered/Resolved]
  - Eczema [Recovering/Resolving]
